FAERS Safety Report 4782675-0 (Version None)
Quarter: 2005Q3

REPORT INFORMATION
  Report Type: 
  Country: None (occurrence: None)
  Receive Date: 20050929
  Receipt Date: 20050629
  Transmission Date: 20060218
  Serious: No
  Sender: FDA-Public Use
  Company Number: US-GLAXOSMITHKLINE-A0564607A

PATIENT
  Sex: Male

DRUGS (6)
  1. COREG [Suspect]
     Dosage: 3.125MG TWICE PER DAY
     Route: 048
     Dates: start: 20041001
  2. PAXIL [Concomitant]
  3. PROSCAR [Concomitant]
  4. NASACORT [Concomitant]
  5. PULMICORT [Concomitant]
  6. CARDIZEM [Concomitant]

REACTIONS (1)
  - RASH [None]
